FAERS Safety Report 5947703-5 (Version None)
Quarter: 2008Q4

REPORT INFORMATION
  Report Type: 
  Country: None (occurrence: None)
  Receive Date: 20081110
  Receipt Date: 20081110
  Transmission Date: 20090506
  Serious: Yes (Other)
  Sender: FDA-Public Use
  Company Number: None

PATIENT
  Age: 44 Year
  Sex: Female
  Weight: 76.6579 kg

DRUGS (2)
  1. PROAIR HFA [Suspect]
     Indication: ASTHMA
     Dosage: 1-2 EVERY 4 HRS. AS NEEDED EVERY 4 HOURS PO
     Route: 048
  2. PROVENTIL-HFA [Suspect]
     Indication: ASTHMA
     Dosage: 1-2 EVERY 4 HRS. AS NEEDED EVERY 4 HOURS PO
     Route: 048

REACTIONS (2)
  - DRUG INEFFECTIVE [None]
  - POOR QUALITY DRUG ADMINISTERED [None]
